FAERS Safety Report 24148833 (Version 2)
Quarter: 2024Q3

REPORT INFORMATION
  Report Type: Report from Study
  Country: US (occurrence: US)
  Receive Date: 20240729
  Receipt Date: 20240919
  Transmission Date: 20241017
  Serious: Yes (Other)
  Sender: SANOFI AVENTIS
  Company Number: US-SA-SAC20240514001324

PATIENT
  Age: 43 Year
  Sex: Male

DRUGS (2)
  1. ALTUVIIIO [Suspect]
     Active Substance: EFANESOCTOCOG ALFA
     Indication: Factor VIII deficiency
     Dosage: 4635 (UNITS NOT PROVIDED), QW
     Route: 042
     Dates: start: 202404, end: 20240724
  2. HEMLIBRA [Concomitant]
     Active Substance: EMICIZUMAB-KXWH

REACTIONS (5)
  - Myocardial infarction [Unknown]
  - Vitamin D decreased [Recovering/Resolving]
  - Contusion [Unknown]
  - Coagulation factor VIII level decreased [Recovering/Resolving]
  - Treatment noncompliance [Unknown]

NARRATIVE: CASE EVENT DATE: 20240101
